FAERS Safety Report 25520723 (Version 1)
Quarter: 2025Q3

REPORT INFORMATION
  Report Type: Spontaneous
  Country: EU (occurrence: EU)
  Receive Date: 20250705
  Receipt Date: 20250705
  Transmission Date: 20251020
  Serious: Yes (Life-Threatening, Hospitalization, Other)
  Sender: AUROBINDO
  Company Number: EU-AFSSAPS-MP2025000896

PATIENT
  Age: 69 Year
  Sex: Male
  Weight: 84 kg

DRUGS (3)
  1. METRONIDAZOLE [Suspect]
     Active Substance: METRONIDAZOLE
     Indication: Diabetic foot infection
     Dosage: 2 GRAM, EVERY OTHER DAY
     Route: 042
     Dates: start: 20250529, end: 20250605
  2. CEFTRIAXONE [Suspect]
     Active Substance: CEFTRIAXONE
     Indication: Diabetic foot infection
     Dosage: 2 GRAM, EVERY OTHER DAY
     Route: 042
     Dates: start: 20250529, end: 20250605
  3. VANCOMYCIN HYDROCHLORIDE [Suspect]
     Active Substance: VANCOMYCIN HYDROCHLORIDE
     Indication: Diabetic foot infection
     Dosage: 2 GRAM, EVERY OTHER DAY
     Route: 042
     Dates: start: 20250529, end: 20250605

REACTIONS (3)
  - Autoimmune haemolytic anaemia [Not Recovered/Not Resolved]
  - Thrombocytopenic purpura [Recovering/Resolving]
  - Evans syndrome [Recovering/Resolving]

NARRATIVE: CASE EVENT DATE: 20250603
